FAERS Safety Report 9423841 (Version 1)
Quarter: 2013Q3

REPORT INFORMATION
  Report Type: Spontaneous
  Country: FR (occurrence: FR)
  Receive Date: 20130729
  Receipt Date: 20130729
  Transmission Date: 20140515
  Serious: Yes (Hospitalization)
  Sender: FDA-Public Use
  Company Number: FR-PFIZER INC-2013214062

PATIENT
  Age: 38 Year
  Sex: Female

DRUGS (19)
  1. VFEND [Suspect]
     Indication: PNEUMONIA
     Dosage: 300 MG, 2X/DAY
     Route: 041
     Dates: start: 20130405, end: 20130410
  2. VANCOMYCIN [Suspect]
     Indication: PNEUMONIA
     Dosage: 1 G, 4X/DAY
     Route: 041
     Dates: start: 20130405, end: 20130412
  3. ACICLOVIR [Suspect]
     Indication: PNEUMONIA
     Dosage: 400 MG, 3X/DAY
     Route: 041
     Dates: start: 20130405, end: 20130412
  4. MEROPENEM [Suspect]
     Indication: PNEUMONIA
     Dosage: 2 G, 3X/DAY
     Route: 041
     Dates: start: 20130405, end: 20130412
  5. CIFLOX [Suspect]
     Indication: PNEUMONIA
     Dosage: 400 MG, 2X/DAY
     Route: 041
     Dates: start: 20130405, end: 20130406
  6. BACTRIM [Suspect]
     Indication: PNEUMONIA
     Dosage: 1.2 G, 3X/DAY
     Route: 041
     Dates: start: 20130405, end: 20130408
  7. AMIKLIN [Concomitant]
     Indication: PNEUMONIA
  8. CEFOTAXIME [Concomitant]
  9. TAZOCILLINE [Concomitant]
     Indication: PNEUMONIA
     Dosage: UNK
     Dates: start: 20130404
  10. DIGOXIN [Concomitant]
  11. TRINITRINE [Concomitant]
  12. FUROSEMIDE [Concomitant]
  13. ALPRAZOLAM [Concomitant]
  14. NEFOPAM HYDROCHLORIDE [Concomitant]
  15. PARACETAMOL [Concomitant]
  16. SUFENTANIL [Concomitant]
  17. PANTOPRAZOLE [Concomitant]
  18. RACECADOTRIL [Concomitant]
  19. NEUPOGEN [Concomitant]

REACTIONS (1)
  - Liver disorder [Recovered/Resolved]
